FAERS Safety Report 5288162-8 (Version None)
Quarter: 2007Q1

REPORT INFORMATION
  Report Type: 
  Country: None (occurrence: None)
  Receive Date: 20070330
  Receipt Date: 20070326
  Transmission Date: 20070707
  Serious: Yes (Hospitalization)
  Sender: FDA-Public Use
  Company Number: APP200700043

PATIENT
  Age: 21 Year
  Sex: Female

DRUGS (5)
  1. CHORIONIC GONADOTROPIN [Suspect]
     Indication: ASSISTED FERTILISATION
     Dosage: 10000 IU, INTRAMUSCULAR
     Route: 030
  2. CHORIONIC GONADOTROPIN [Suspect]
     Indication: SEDATION
     Dosage: 10000 IU, INTRAMUSCULAR
     Route: 030
  3. GONAL-F [Suspect]
     Indication: ASSISTED FERTILISATION
     Dosage: SEE IMAGE
  4. PROPOFOL [Concomitant]
  5. LEUPROLIDE ACETATE [Concomitant]

REACTIONS (4)
  - CEREBRAL ARTERY THROMBOSIS [None]
  - CEREBRAL INFARCTION [None]
  - HAEMATOCRIT DECREASED [None]
  - HAEMOGLOBIN DECREASED [None]
